FAERS Safety Report 9347449 (Version 3)
Quarter: 2014Q1

REPORT INFORMATION
  Report Type: Spontaneous
  Country: US (occurrence: US)
  Receive Date: 20130614
  Receipt Date: 20140214
  Transmission Date: 20141002
  Serious: Yes (Hospitalization)
  Sender: FDA-Public Use
  Company Number: US-B.I. PHARMACEUTICALS,INC./RIDGEFIELD-2013-BI-16555BP

PATIENT
  Age: 80 Year
  Sex: Male
  Weight: 106.59 kg

DRUGS (13)
  1. PRADAXA [Suspect]
     Indication: CEREBROVASCULAR ACCIDENT PROPHYLAXIS
     Dosage: 150 MG
     Dates: start: 20111011, end: 20111206
  2. PRADAXA [Suspect]
     Indication: THROMBOSIS PROPHYLAXIS
  3. PRADAXA [Suspect]
     Indication: ATRIAL FIBRILLATION
  4. ALBUTEROL [Concomitant]
     Dates: start: 2004
  5. ATENOLOL [Concomitant]
     Dosage: 25 MG
     Dates: start: 2004
  6. HUMALOG INSULIN [Concomitant]
     Dates: start: 2004
  7. LANTUS INSULIN [Concomitant]
     Dosage: 30 U
     Route: 058
     Dates: start: 2004
  8. NITROGLYCERIN [Concomitant]
  9. POTASSIUM CHLORIDE [Concomitant]
     Dosage: 10 MEQ
  10. APLISOL [Concomitant]
  11. ASPIRIN [Concomitant]
  12. LASIX [Concomitant]
     Dosage: 20 MG
  13. AMLODIPINE [Concomitant]
     Dosage: 500 MG

REACTIONS (4)
  - Haematuria [Unknown]
  - Coagulopathy [Unknown]
  - Renal failure acute [Unknown]
  - Epistaxis [Unknown]
